FAERS Safety Report 8296442-7 (Version None)
Quarter: 2012Q2

REPORT INFORMATION
  Report Type: 
  Country: None (occurrence: None)
  Receive Date: 20120418
  Receipt Date: 20120410
  Transmission Date: 20120825
  Serious: Yes (Death)
  Sender: FDA-Public Use
  Company Number: NL-FRI-1000029885

PATIENT
  Sex: Male
  Weight: 100 kg

DRUGS (2)
  1. CITALOPRAM HYDROBROMIDE [Suspect]
     Indication: DEPRESSION
     Dosage: 40 MG
     Route: 048
  2. ZOLPIDEM [Concomitant]
     Dosage: 10 MG
     Route: 048

REACTIONS (2)
  - ARRHYTHMIA [None]
  - DEATH [None]
